FAERS Safety Report 21261925 (Version 1)
Quarter: 2022Q3

REPORT INFORMATION
  Report Type: Spontaneous
  Country: US (occurrence: US)
  Receive Date: 20220827
  Receipt Date: 20220827
  Transmission Date: 20221027
  Serious: Yes (Other)
  Sender: FDA-Public Use
  Company Number: US-JNJFOC-20220843208

PATIENT

DRUGS (3)
  1. SPRAVATO [Suspect]
     Active Substance: ESKETAMINE
     Indication: Depression
     Dosage: INDUCTION PHASE
  2. SPRAVATO [Suspect]
     Active Substance: ESKETAMINE
  3. NORFLEX [Concomitant]
     Active Substance: ORPHENADRINE CITRATE

REACTIONS (2)
  - Seizure [Unknown]
  - Therapeutic response unexpected [Unknown]
